FAERS Safety Report 23444281 (Version 1)
Quarter: 2024Q1

REPORT INFORMATION
  Report Type: Spontaneous
  Country: CN (occurrence: CN)
  Receive Date: 20240125
  Receipt Date: 20240125
  Transmission Date: 20240410
  Serious: Yes (Life-Threatening, Other)
  Sender: FDA-Public Use
  Company Number: CN-MLMSERVICE-20240115-4773282-1

PATIENT
  Age: 43 Year
  Sex: Female

DRUGS (38)
  1. GEMCITABINE HYDROCHLORIDE [Suspect]
     Active Substance: GEMCITABINE HYDROCHLORIDE
     Indication: Peripheral T-cell lymphoma unspecified stage IV
     Dosage: UNK, UNKNOWN
     Route: 065
     Dates: start: 20181001
  2. GEMCITABINE HYDROCHLORIDE [Suspect]
     Active Substance: GEMCITABINE HYDROCHLORIDE
     Dosage: UNK, UNKNOWN
     Route: 065
     Dates: start: 20180908
  3. CLADRIBINE [Suspect]
     Active Substance: CLADRIBINE
     Indication: Peripheral T-cell lymphoma unspecified stage IV
     Dosage: UNK, UNKNOWN
     Route: 065
     Dates: start: 20181218
  4. CISPLATIN [Suspect]
     Active Substance: CISPLATIN
     Indication: Peripheral T-cell lymphoma unspecified stage IV
     Dosage: UNK, UNKNOWN
     Route: 065
     Dates: start: 20180908
  5. CISPLATIN [Suspect]
     Active Substance: CISPLATIN
     Dosage: UNK, UNKNOWN
     Route: 065
     Dates: start: 20181001
  6. TUCIDINOSTAT [Suspect]
     Active Substance: TUCIDINOSTAT
     Indication: Peripheral T-cell lymphoma unspecified stage IV
     Dosage: 40 MG, WEEKLY (1/W)
     Route: 048
     Dates: start: 20181109
  7. TUCIDINOSTAT [Suspect]
     Active Substance: TUCIDINOSTAT
     Dosage: 40 MG, 2/W
     Route: 048
     Dates: start: 20181001
  8. TUCIDINOSTAT [Suspect]
     Active Substance: TUCIDINOSTAT
     Dosage: 40 MG, WEEKLY (1/W)
     Route: 048
     Dates: start: 20181203
  9. TUCIDINOSTAT [Suspect]
     Active Substance: TUCIDINOSTAT
     Dosage: 40 MG, 2/W
     Route: 048
     Dates: start: 20180908
  10. CAMRELIZUMAB [Suspect]
     Active Substance: CAMRELIZUMAB
     Indication: Peripheral T-cell lymphoma unspecified stage IV
     Dosage: 200 MG, OTHER
     Route: 042
     Dates: start: 20190129, end: 2019
  11. PEGASPARGASE [Suspect]
     Active Substance: PEGASPARGASE
     Indication: Peripheral T-cell lymphoma unspecified stage IV
     Dosage: UNK, UNKNOWN
     Route: 065
     Dates: start: 20180808
  12. PEGASPARGASE [Suspect]
     Active Substance: PEGASPARGASE
     Dosage: UNK, UNKNOWN
     Route: 065
     Dates: start: 20180629
  13. CYTARABINE [Suspect]
     Active Substance: CYTARABINE
     Indication: Peripheral T-cell lymphoma unspecified stage IV
     Dosage: UNK, UNKNOWN
     Route: 065
     Dates: start: 20181218
  14. THALIDOMIDE [Suspect]
     Active Substance: THALIDOMIDE
     Indication: Peripheral T-cell lymphoma unspecified stage IV
     Dosage: 25 MG, DAILY
     Route: 048
     Dates: start: 20181218
  15. DOXORUBICIN [Suspect]
     Active Substance: DOXORUBICIN
     Indication: Peripheral T-cell lymphoma unspecified stage IV
     Dosage: UNK, UNKNOWN
     Route: 065
     Dates: start: 20181109
  16. DOXORUBICIN [Suspect]
     Active Substance: DOXORUBICIN
     Dosage: UNK, UNKNOWN
     Route: 065
     Dates: start: 20181203
  17. EPIRUBICIN [Suspect]
     Active Substance: EPIRUBICIN
     Indication: Peripheral T-cell lymphoma unspecified stage IV
     Dosage: UNK, UNKNOWN
     Route: 065
     Dates: start: 20180629
  18. EPIRUBICIN [Suspect]
     Active Substance: EPIRUBICIN
     Dosage: UNK, UNKNOWN
     Route: 065
     Dates: start: 20180808
  19. DEXAMETHASONE [Suspect]
     Active Substance: DEXAMETHASONE
     Indication: Peripheral T-cell lymphoma unspecified stage IV
     Dosage: UNK, UNKNOWN
     Route: 065
     Dates: start: 20190114, end: 2019
  20. METHOTREXATE [Suspect]
     Active Substance: METHOTREXATE
     Indication: Peripheral T-cell lymphoma unspecified stage IV
     Dosage: UNK UNK, UNKNOWN
     Route: 065
     Dates: start: 20180716
  21. METHOTREXATE [Suspect]
     Active Substance: METHOTREXATE
     Dosage: UNK UNK, UNKNOWN
     Route: 065
     Dates: start: 20180823
  22. VENETOCLAX [Suspect]
     Active Substance: VENETOCLAX
     Indication: Peripheral T-cell lymphoma unspecified stage IV
     Dosage: UNK, UNKNOWN
     Route: 065
     Dates: start: 20190114, end: 2019
  23. VINDESINE [Suspect]
     Active Substance: VINDESINE
     Indication: Peripheral T-cell lymphoma unspecified stage IV
     Dosage: UNK, UNKNOWN
     Route: 065
     Dates: start: 20180808
  24. VINDESINE [Suspect]
     Active Substance: VINDESINE
     Dosage: UNK, UNKNOWN
     Route: 065
     Dates: start: 20180629
  25. CYCLOPHOSPHAMIDE [Suspect]
     Active Substance: CYCLOPHOSPHAMIDE
     Indication: Peripheral T-cell lymphoma unspecified stage IV
     Dosage: UNK, UNKNOWN
     Route: 065
     Dates: start: 20180629
  26. CYCLOPHOSPHAMIDE [Suspect]
     Active Substance: CYCLOPHOSPHAMIDE
     Dosage: UNK, UNKNOWN
     Route: 065
     Dates: start: 20180808
  27. DECITABINE [Suspect]
     Active Substance: DECITABINE
     Indication: Peripheral T-cell lymphoma unspecified stage IV
     Dosage: 125 MG, OTHER
     Route: 042
     Dates: start: 20190129, end: 2019
  28. ETOPOSIDE [Suspect]
     Active Substance: ETOPOSIDE
     Indication: Peripheral T-cell lymphoma unspecified stage IV
     Dosage: UNK, UNKNOWN
     Route: 065
     Dates: start: 20181109
  29. ETOPOSIDE [Suspect]
     Active Substance: ETOPOSIDE
     Dosage: UNK, UNKNOWN
     Route: 065
     Dates: start: 20181203
  30. BORTEZOMIB [Suspect]
     Active Substance: BORTEZOMIB
     Indication: Peripheral T-cell lymphoma unspecified stage IV
     Dosage: UNK, UNKNOWN
     Route: 065
     Dates: start: 20190114, end: 2019
  31. CYTARABINE [Suspect]
     Active Substance: CYTARABINE
     Indication: Peripheral T-cell lymphoma unspecified stage IV
     Dosage: UNK UNK, UNKNOWN
     Route: 065
     Dates: start: 20181203
  32. CYTARABINE [Suspect]
     Active Substance: CYTARABINE
     Dosage: UNK, UNKNOWN
     Route: 065
     Dates: start: 20181109
  33. DEXAMETHASONE [Suspect]
     Active Substance: DEXAMETHASONE
     Indication: Peripheral T-cell lymphoma unspecified stage IV
     Dosage: UNK, UNKNOWN
     Route: 065
     Dates: start: 20181109
  34. DEXAMETHASONE [Suspect]
     Active Substance: DEXAMETHASONE
     Dosage: UNK, UNKNOWN
     Route: 065
     Dates: start: 20181203, end: 201812
  35. PREDNISONE [Suspect]
     Active Substance: PREDNISONE
     Indication: Peripheral T-cell lymphoma unspecified stage IV
     Dosage: UNK, UNKNOWN
     Route: 065
     Dates: start: 20180629
  36. PREDNISONE [Suspect]
     Active Substance: PREDNISONE
     Dosage: UNK, UNKNOWN
     Route: 065
     Dates: start: 20180808
  37. DEXAMETHASONE [Suspect]
     Active Substance: DEXAMETHASONE
     Indication: Peripheral T-cell lymphoma unspecified stage IV
     Dosage: UNK, UNKNOWN
     Route: 065
     Dates: start: 20181001
  38. DEXAMETHASONE [Suspect]
     Active Substance: DEXAMETHASONE
     Dosage: UNK, UNKNOWN
     Route: 065
     Dates: start: 20180908

REACTIONS (4)
  - Myelosuppression [Unknown]
  - Staphylococcal bacteraemia [Unknown]
  - Staphylococcal infection [Unknown]
  - Pneumonia bacterial [Unknown]
